FAERS Safety Report 7628399-3 (Version None)
Quarter: 2011Q3

REPORT INFORMATION
  Report Type: 
  Country: None (occurrence: None)
  Receive Date: 20110722
  Receipt Date: 20110718
  Transmission Date: 20111222
  Serious: No
  Sender: FDA-Public Use
  Company Number: US-PFIZER INC-2011163560

PATIENT
  Sex: Male

DRUGS (1)
  1. EFFEXOR [Suspect]
     Indication: DEPRESSION
     Dosage: UNK

REACTIONS (5)
  - INSOMNIA [None]
  - HYPERACUSIS [None]
  - SENSITISATION [None]
  - PHOTOSENSITIVITY REACTION [None]
  - DRUG INTOLERANCE [None]
